FAERS Safety Report 8506735-3 (Version None)
Quarter: 2012Q3

REPORT INFORMATION
  Report Type: 
  Country: None (occurrence: None)
  Receive Date: 20120712
  Receipt Date: 20120628
  Transmission Date: 20120928
  Serious: Yes (Hospitalization)
  Sender: FDA-Public Use
  Company Number: US-ENDO PHARMACEUTICALS INC.-HCDA20120050

PATIENT
  Sex: Female

DRUGS (2)
  1. HYDROCODONE/ACETAMINOPHEN SOLUTION 7.5MG/500MG PER 15ML [Suspect]
     Indication: BACK INJURY
     Dosage: 7.5MG/500MG
     Route: 048
  2. HYDROCODONE/ACETAMINOPHEN SOLUTION 7.5MG/500MG PER 15ML [Suspect]
     Indication: ROAD TRAFFIC ACCIDENT
     Dosage: 7.5MG/500MG
     Route: 048
     Dates: start: 20120601

REACTIONS (3)
  - VERTIGO [None]
  - FALL [None]
  - HIP FRACTURE [None]
